FAERS Safety Report 6456094-5 (Version None)
Quarter: 2009Q4

REPORT INFORMATION
  Report Type: 
  Country: None (occurrence: None)
  Receive Date: 20091125
  Receipt Date: 20091110
  Transmission Date: 20100525
  Serious: Yes (Other)
  Sender: FDA-Public Use
  Company Number: US-JNJFOC-20091008780

PATIENT
  Sex: Female

DRUGS (4)
  1. MONISTAT 7 COMBINATION PACK [Suspect]
     Route: 067
     Dates: start: 20091001, end: 20091001
  2. MONISTAT 7 COMBINATION PACK [Suspect]
     Indication: FUNGAL INFECTION
     Route: 067
     Dates: start: 20091001, end: 20091001
  3. MONISTAT 7 COMBINATION PACK [Suspect]
     Route: 061
     Dates: start: 20091001, end: 20091001
  4. MONISTAT 7 COMBINATION PACK [Suspect]
     Route: 061
     Dates: start: 20091001, end: 20091001

REACTIONS (3)
  - EXPIRED DRUG ADMINISTERED [None]
  - RASH PRURITIC [None]
  - STREPTOCOCCAL INFECTION [None]
